FAERS Safety Report 8289857-4 (Version None)
Quarter: 2012Q2

REPORT INFORMATION
  Report Type: 
  Country: None (occurrence: None)
  Receive Date: 20120417
  Receipt Date: 20120404
  Transmission Date: 20120825
  Serious: Yes (Death)
  Sender: FDA-Public Use
  Company Number: US-ROCHE-1047395

PATIENT
  Sex: Male

DRUGS (30)
  1. KLOR-CON M20 [Concomitant]
     Route: 065
     Dates: start: 20110727
  2. PALONOSETRON HYDROCHLORIDE [Concomitant]
     Dosage: LAST DOSE GIVEN 21/OCT/2011
     Route: 065
     Dates: start: 20111021
  3. FLOMAX [Concomitant]
     Route: 048
  4. ASCORBIC ACID [Concomitant]
     Route: 048
     Dates: end: 20111129
  5. EPIRUBICIN HYDROCHLORIDE [Concomitant]
     Dosage: 120 MG ( AT 49.2 MG/ M^2) INTRAVENOUS DAILY PUSH OVER 10 MIN FOR 1 DAY, LAST DOSE GIVEN 25/APR/2011
     Route: 042
     Dates: start: 20110404, end: 20120125
  6. ASPIRIN [Concomitant]
     Route: 048
     Dates: end: 20110401
  7. XELODA [Suspect]
     Indication: COLORECTAL CANCER METASTATIC
     Route: 048
     Dates: start: 20110404, end: 20110914
  8. XELODA [Suspect]
     Dosage: ORAL TWICE IN A DAY FOR 21 DAY
     Route: 048
     Dates: start: 20110404, end: 20111010
  9. FUROSEMIDE [Concomitant]
     Dosage: LAST DOSE GIVEN 21/OCT/2011
     Route: 065
     Dates: start: 20111021
  10. HYDROCODONE BITARTRATE AND ACETAMINOPHEN [Concomitant]
     Route: 065
     Dates: start: 20111021
  11. CISPLATIN [Concomitant]
     Dosage: LAST DOSE GIVEN 21/OCT/2011
     Route: 065
     Dates: start: 20111021
  12. GRANISETRON  HCL [Concomitant]
     Route: 065
     Dates: start: 20110601
  13. ONDANSETRON [Concomitant]
     Dosage: LAST DOSE GOVEN 25/APR/2011
     Route: 058
     Dates: start: 20110425, end: 20110602
  14. OXALIPLATIN [Concomitant]
     Dosage: 250MG ( AT 102.5 MG / M^2) IV DAILY CONTINOUS OVER 120MIN FOR 1 DAY D%W 500 ML
     Route: 042
     Dates: start: 20110404, end: 20110425
  15. FUROSEMIDE [Concomitant]
     Dosage: DAILY FOR 1 DAY , LAST DOSE GIVEN 25/APR/2011
     Route: 042
     Dates: start: 20110404, end: 20110915
  16. AVODART [Concomitant]
     Route: 048
  17. PRILOSEC [Concomitant]
     Route: 048
  18. DEXTROSE [Concomitant]
     Dosage: 250 ML OF 5  PERCENT IV IN ONE SHORT, LAST DOSE GIVEN 25/APR/2011
     Route: 042
     Dates: start: 20110404, end: 20110915
  19. SODIUM CHLORIDE [Concomitant]
     Dosage: INTRAVENOUS ONCE , LAST DOSE GIVEN 21/OCT/2011
     Route: 042
     Dates: start: 20110404, end: 20120111
  20. DOCETAXEL [Concomitant]
     Dosage: LAST DOSE GIVEN 21/OCT/2011,
     Route: 065
     Dates: start: 20111021
  21. TRAMADOL HCL [Concomitant]
     Route: 048
  22. GRANISETRON  HCL [Concomitant]
     Dosage: LAST DOSE GIVEN ON 04/APR/2011
     Route: 042
     Dates: start: 20110601
  23. ATIVAN [Concomitant]
     Route: 048
  24. DILTIAZEM [Concomitant]
     Route: 048
  25. POTASSIUM CHLORIDE [Concomitant]
     Dosage: 2(20 M EQ) TABLET
     Route: 048
  26. LOMOTIL [Concomitant]
     Dosage: 2.5-0.025 MG Q PRN
     Route: 048
  27. DECADRON [Concomitant]
     Dosage: DAILY SHORT FOR 1 DAY IN NS 100 ML (5), LAST DOSE GIVEN 25/APR/2011
     Route: 042
     Dates: start: 20110404, end: 20120125
  28. NEULASTA [Concomitant]
     Route: 058
     Dates: start: 20110405, end: 20110916
  29. MEGESTROL ACETATE [Concomitant]
     Route: 065
     Dates: start: 20111207
  30. FENTANYL [Concomitant]
     Dosage: 25 MICROGRAM PER HOUR PATCH 72 HOUR TRANSDERMAL PER 72 HOUR.
     Route: 062
     Dates: start: 20111025, end: 20111229

REACTIONS (2)
  - DEATH [None]
  - METASTATIC GASTRIC CANCER [None]
